FAERS Safety Report 16151537 (Version 2)
Quarter: 2019Q3

REPORT INFORMATION
  Report Type: Report from Study
  Country: US (occurrence: US)
  Receive Date: 20190403
  Receipt Date: 20190701
  Transmission Date: 20191004
  Serious: Yes (Hospitalization, Other)
  Sender: FDA-Public Use
  Company Number: US-JNJFOC-20190140892

PATIENT
  Sex: Male

DRUGS (2)
  1. IMBRUVICA [Suspect]
     Active Substance: IBRUTINIB
     Indication: CHRONIC LYMPHOCYTIC LEUKAEMIA
     Route: 048
     Dates: start: 20190118
  2. IMBRUVICA [Suspect]
     Active Substance: IBRUTINIB
     Route: 048
     Dates: start: 20190315, end: 2019

REACTIONS (10)
  - Epistaxis [Unknown]
  - Contusion [Unknown]
  - White blood cell count abnormal [Unknown]
  - Pneumonia [Unknown]
  - Hospitalisation [Unknown]
  - Blood blister [Unknown]
  - Anaemia [Not Recovered/Not Resolved]
  - White blood cell count increased [Unknown]
  - Gastrointestinal haemorrhage [Unknown]
  - Respiratory failure [Unknown]
